FAERS Safety Report 8151212-5 (Version None)
Quarter: 2012Q1

REPORT INFORMATION
  Report Type: 
  Country: None (occurrence: None)
  Receive Date: 20120220
  Receipt Date: 20120217
  Transmission Date: 20120608
  Serious: Yes (Death)
  Sender: FDA-Public Use
  Company Number: PHHY2012JP013937

PATIENT
  Age: 76 Year
  Sex: Male

DRUGS (5)
  1. FLUOROURACIL [Concomitant]
     Dosage: 400 MG/M2, UNK
  2. OXALIPLATIN [Suspect]
     Dosage: 440 MG/M2, UNK
     Route: 042
  3. OXALIPLATIN [Suspect]
     Indication: COLORECTAL CANCER
     Dosage: 375 MG/M2, UNK
     Route: 042
  4. LEVOLEUCOVORIN CALCIUM [Concomitant]
     Dosage: 200 MG/M2, UNK
  5. FLUOROURACIL [Concomitant]
     Dosage: 2400 MG/M2, UNK

REACTIONS (2)
  - PERIPHERAL SENSORY NEUROPATHY [None]
  - DEATH [None]
